FAERS Safety Report 20555777 (Version 2)
Quarter: 2022Q1

REPORT INFORMATION
  Report Type: Other
  Country: TR (occurrence: None)
  Receive Date: 20220304
  Receipt Date: 20220314
  Transmission Date: 20220423
  Serious: Yes (Other)
  Sender: FDA-Public Use
  Company Number: TR-MLMSERVICE-20220216-3377342-1

PATIENT
  Age: 16 Year
  Sex: Female

DRUGS (2)
  1. SOMATROPIN [Suspect]
     Active Substance: SOMATROPIN
     Indication: Growth retardation
     Dosage: 42 UG/KG
     Route: 065
  2. LEVOTHYROXINE [Concomitant]
     Active Substance: LEVOTHYROXINE
     Indication: Hypothyroidism

REACTIONS (5)
  - Hyperlipidaemia [Unknown]
  - Insulin resistance [Unknown]
  - Blood insulin increased [Unknown]
  - Glucose tolerance impaired [Unknown]
  - Insulin-like growth factor increased [Unknown]
